FAERS Safety Report 17074029 (Version 3)
Quarter: 2019Q4

REPORT INFORMATION
  Report Type: Spontaneous
  Country: US (occurrence: US)
  Receive Date: 20191126
  Receipt Date: 20191218
  Transmission Date: 20200122
  Serious: Yes (Other)
  Sender: FDA-Public Use
  Company Number: US-ALK-ABELLO A/S-2019AA003694

PATIENT

DRUGS (11)
  1. PILOCARPINE. [Concomitant]
     Active Substance: PILOCARPINE
     Route: 047
  2. LACTOBACILLUS ACIDOPHILUS [Concomitant]
     Active Substance: LACTOBACILLUS ACIDOPHILUS
  3. TAE BULK 168 FRAXINUS AMERICANA [Suspect]
     Active Substance: FRAXINUS AMERICANA POLLEN
     Indication: PRODUCT USED FOR UNKNOWN INDICATION
     Dosage: UNK
     Dates: start: 20180523, end: 20190829
  4. VITAMIN C [Concomitant]
     Active Substance: ASCORBIC ACID
  5. TEMAZEPAM. [Concomitant]
     Active Substance: TEMAZEPAM
  6. DOXEPIN [Concomitant]
     Active Substance: DOXEPIN
  7. TAE BULK 402 [Suspect]
     Active Substance: ALTERNARIA ALTERNATA
     Indication: PRODUCT USED FOR UNKNOWN INDICATION
     Dosage: UNK
     Dates: start: 20180523, end: 20190829
  8. STAE BULK 555 (FELIS DOMESTICUS) [Suspect]
     Active Substance: FELIS CATUS HAIR
     Indication: PRODUCT USED FOR UNKNOWN INDICATION
     Dosage: UNK
     Dates: start: 20180523, end: 20190829
  9. AMLODIPINE [Concomitant]
     Active Substance: AMLODIPINE BESYLATE
  10. DULOXETINE. [Concomitant]
     Active Substance: DULOXETINE
  11. OMEPRAZOLE. [Concomitant]
     Active Substance: OMEPRAZOLE

REACTIONS (9)
  - Dysgeusia [Unknown]
  - Rash [Unknown]
  - Grip strength decreased [Unknown]
  - Gait disturbance [Unknown]
  - Paraesthesia [Unknown]
  - Blood mercury abnormal [Unknown]
  - Burning sensation [Unknown]
  - Taste disorder [Unknown]
  - Parosmia [Unknown]
